FAERS Safety Report 8130040-0 (Version None)
Quarter: 2012Q1

REPORT INFORMATION
  Report Type: 
  Country: None (occurrence: None)
  Receive Date: 20120210
  Receipt Date: 20120207
  Transmission Date: 20120608
  Serious: Yes (Hospitalization)
  Sender: FDA-Public Use
  Company Number: BR-PFIZER INC-2012034078

PATIENT
  Age: 69 Year
  Sex: Male

DRUGS (4)
  1. LIPITOR [Suspect]
     Indication: BLOOD CHOLESTEROL
     Dosage: 10 MG (ONE TABLET), 1X/DAY
     Route: 048
     Dates: start: 20080501, end: 20100101
  2. ALDACTONE [Concomitant]
  3. CLOPIDOGREL [Concomitant]
  4. ICTUS [Concomitant]

REACTIONS (1)
  - INFARCTION [None]
